FAERS Safety Report 25706988 (Version 1)
Quarter: 2025Q3

REPORT INFORMATION
  Report Type: Spontaneous
  Country: CN (occurrence: CN)
  Receive Date: 20250820
  Receipt Date: 20250820
  Transmission Date: 20251021
  Serious: Yes (Life-Threatening)
  Sender: PFIZER
  Company Number: CN-PFIZER INC-PV202500100040

PATIENT
  Age: 16 Year
  Sex: Female
  Weight: 49 kg

DRUGS (1)
  1. CYTARABINE [Suspect]
     Active Substance: CYTARABINE
     Indication: Acute myeloid leukaemia
     Dosage: 1454 MG, 2X/DAY
     Route: 041
     Dates: start: 20250707, end: 20250711

REACTIONS (9)
  - Dizziness [Recovering/Resolving]
  - Chest discomfort [Recovering/Resolving]
  - Flushing [Recovering/Resolving]
  - Upper respiratory tract congestion [Recovering/Resolving]
  - Pyrexia [Recovering/Resolving]
  - Heart rate increased [Recovering/Resolving]
  - Respiratory rate increased [Recovering/Resolving]
  - Blood pressure systolic decreased [Recovering/Resolving]
  - Blood pressure diastolic decreased [Recovering/Resolving]

NARRATIVE: CASE EVENT DATE: 20250708
